FAERS Safety Report 7037833-1 (Version None)
Quarter: 2010Q4

REPORT INFORMATION
  Report Type: 
  Country: None (occurrence: None)
  Receive Date: 20101011
  Receipt Date: 20101006
  Transmission Date: 20110411
  Serious: Yes (Death)
  Sender: FDA-Public Use
  Company Number: JP-ABBOTT-10P-087-0675922-00

PATIENT
  Age: 73 Year
  Sex: Male
  Weight: 56.8 kg

DRUGS (1)
  1. HUMIRA [Suspect]
     Indication: RHEUMATOID ARTHRITIS
     Route: 058
     Dates: start: 20081218, end: 20100517

REACTIONS (2)
  - INFECTION [None]
  - LUNG NEOPLASM MALIGNANT [None]
